FAERS Safety Report 17431219 (Version 3)
Quarter: 2020Q1

REPORT INFORMATION
  Report Type: Report from Study
  Country: MX (occurrence: MX)
  Receive Date: 20200218
  Receipt Date: 20200302
  Transmission Date: 20200409
  Serious: Yes (Other)
  Sender: FDA-Public Use
  Company Number: NVSC2020MX044318

PATIENT
  Sex: Female

DRUGS (1)
  1. EXFORGE [Suspect]
     Active Substance: AMLODIPINE BESYLATE\VALSARTAN
     Indication: HYPERTENSION
     Dosage: 1 DF, QD (STARTED 3 YEARS AGO)
     Route: 048
     Dates: end: 20200210

REACTIONS (5)
  - Diabetes mellitus [Not Recovered/Not Resolved]
  - Terminal state [Not Recovered/Not Resolved]
  - Malaise [Unknown]
  - Blood pressure decreased [Not Recovered/Not Resolved]
  - Ill-defined disorder [Not Recovered/Not Resolved]
